FAERS Safety Report 10066747 (Version 1)
Quarter: 2014Q2

REPORT INFORMATION
  Report Type: Spontaneous
  Country: US (occurrence: US)
  Receive Date: 20140408
  Receipt Date: 20140408
  Transmission Date: 20141212
  Serious: No
  Sender: FDA-Public Use
  Company Number: US-GILEAD-2014-0098758

PATIENT
  Age: 58 Year
  Sex: Male

DRUGS (4)
  1. SOVALDI [Suspect]
     Indication: HEPATITIS C
     Dosage: 400 MG, QD
     Route: 048
     Dates: start: 20140226
  2. RIBAPAK [Suspect]
     Indication: HEPATITIS C
     Dosage: 1200 MG, QD
     Route: 065
  3. CLONAZEPAM [Concomitant]
  4. CYCLOBENZAPRINE [Concomitant]

REACTIONS (1)
  - Arthralgia [Unknown]
